FAERS Safety Report 9057969 (Version 1)
Quarter: 2013Q1

REPORT INFORMATION
  Report Type: Spontaneous
  Country: IT (occurrence: IT)
  Receive Date: 20130210
  Receipt Date: 20130210
  Transmission Date: 20140127
  Serious: Yes (Hospitalization)
  Sender: FDA-Public Use
  Company Number: IT-TEVA-383991ISR

PATIENT
  Age: 74 None
  Sex: Female

DRUGS (5)
  1. CARBOLITHIUM [Suspect]
     Indication: BIPOLAR DISORDER
     Dosage: 600 MILLIGRAM DAILY;
     Route: 048
     Dates: start: 20080101, end: 20130128
  2. GABAPENTIN [Concomitant]
  3. MINIAS [Concomitant]
  4. XERISTAR [Concomitant]
     Route: 048
  5. EN [Concomitant]

REACTIONS (7)
  - Toxicity to various agents [Recovering/Resolving]
  - Bradykinesia [Recovering/Resolving]
  - Bradyphrenia [Recovering/Resolving]
  - Gait disturbance [Recovering/Resolving]
  - Fall [Recovering/Resolving]
  - Head injury [Recovering/Resolving]
  - Facial bones fracture [Recovering/Resolving]
